FAERS Safety Report 13505849 (Version 1)
Quarter: 2017Q2

REPORT INFORMATION
  Report Type: Spontaneous
  Country: US (occurrence: US)
  Receive Date: 20170502
  Receipt Date: 20170502
  Transmission Date: 20170830
  Serious: Yes (Hospitalization)
  Sender: FDA-Public Use
  Company Number: US-ROCHE-1367584

PATIENT
  Age: 66 Year
  Sex: Female
  Weight: 56.75 kg

DRUGS (6)
  1. FLUOROURACIL. [Concomitant]
     Active Substance: FLUOROURACIL
     Indication: COLON CANCER
     Route: 042
     Dates: start: 20130905, end: 20140228
  2. FOLINIC ACID [Concomitant]
     Active Substance: LEUCOVORIN
  3. OXALIPLATIN. [Concomitant]
     Active Substance: OXALIPLATIN
     Indication: COLON CANCER
     Route: 042
     Dates: start: 20130905, end: 20140228
  4. AVASTIN [Suspect]
     Active Substance: BEVACIZUMAB
     Indication: COLON CANCER
     Route: 042
     Dates: start: 20140214, end: 20140228
  5. IRINOTECAN [Concomitant]
     Active Substance: IRINOTECAN
  6. LEUCOVORIN. [Concomitant]
     Active Substance: LEUCOVORIN
     Indication: COLON CANCER
     Route: 042
     Dates: start: 20130905, end: 20140228

REACTIONS (1)
  - Enterocutaneous fistula [Recovering/Resolving]

NARRATIVE: CASE EVENT DATE: 20140305
